FAERS Safety Report 14741243 (Version 1)
Quarter: 2018Q2

REPORT INFORMATION
  Report Type: Report from Study
  Country: None (occurrence: GB)
  Receive Date: 20180410
  Receipt Date: 20180410
  Transmission Date: 20180711
  Serious: Yes (Hospitalization)
  Sender: FDA-Public Use
  Company Number: GB-ABBVIE-18K-167-2314802-00

PATIENT
  Age: 64 Year
  Sex: Male
  Weight: 100 kg

DRUGS (7)
  1. HUMIRA [Suspect]
     Active Substance: ADALIMUMAB
     Indication: PSORIASIS
     Route: 058
     Dates: start: 20150915
  2. NOVORAPID [Concomitant]
     Active Substance: INSULIN ASPART
     Indication: PRODUCT USED FOR UNKNOWN INDICATION
     Dates: start: 20000701
  3. LOSARTAN. [Concomitant]
     Active Substance: LOSARTAN
     Indication: PRODUCT USED FOR UNKNOWN INDICATION
     Dates: start: 20140301
  4. LANSOPRAZOLE. [Concomitant]
     Active Substance: LANSOPRAZOLE
     Indication: PRODUCT USED FOR UNKNOWN INDICATION
     Dates: start: 20000701
  5. PREGABALIN. [Concomitant]
     Active Substance: PREGABALIN
     Indication: PRODUCT USED FOR UNKNOWN INDICATION
     Dates: start: 20160601
  6. LANTUS [Concomitant]
     Active Substance: INSULIN GLARGINE
     Indication: PRODUCT USED FOR UNKNOWN INDICATION
     Dates: start: 20000712
  7. ALVERINE CITRATE [Concomitant]
     Active Substance: ALVERINE CITRATE
     Indication: PRODUCT USED FOR UNKNOWN INDICATION
     Dates: start: 20150827

REACTIONS (3)
  - Angina unstable [Recovered/Resolved]
  - Acute coronary syndrome [Recovered/Resolved]
  - Coronary artery disease [Recovered/Resolved]

NARRATIVE: CASE EVENT DATE: 20180129
